FAERS Safety Report 11524160 (Version 2)
Quarter: 2016Q1

REPORT INFORMATION
  Report Type: Spontaneous
  Country: FI (occurrence: FI)
  Receive Date: 20150918
  Receipt Date: 20160104
  Transmission Date: 20160525
  Serious: Yes (Disabling, Other)
  Sender: FDA-Public Use
  Company Number: FI-TEVA-592865ISR

PATIENT
  Age: 61 Year
  Sex: Female

DRUGS (3)
  1. LETROZOLE RATIOPHARM [Suspect]
     Active Substance: LETROZOLE
     Route: 048
     Dates: start: 201503
  2. THYROXIN [Suspect]
     Active Substance: LEVOTHYROXINE
     Route: 048
  3. MAREVAN [Concomitant]
     Active Substance: WARFARIN SODIUM
     Route: 048
     Dates: start: 201505

REACTIONS (6)
  - Electrocardiogram QT prolonged [Recovered/Resolved]
  - Depression [Not Recovered/Not Resolved]
  - Fatigue [Not Recovered/Not Resolved]
  - Palpitations [Recovered/Resolved]
  - Depressed mood [Not Recovered/Not Resolved]
  - Impaired work ability [Not Recovered/Not Resolved]
